FAERS Safety Report 9537918 (Version 1)
Quarter: 2013Q3

REPORT INFORMATION
  Report Type: Spontaneous
  Country: GB (occurrence: GB)
  Receive Date: 20130919
  Receipt Date: 20130919
  Transmission Date: 20140515
  Serious: Yes (Hospitalization, Other)
  Sender: FDA-Public Use
  Company Number: PHHY2013GB101546

PATIENT
  Age: 67 Year
  Sex: Female

DRUGS (20)
  1. LEVOFLOXACIN [Suspect]
     Indication: CELLULITIS
     Route: 048
     Dates: start: 201210, end: 20121029
  2. ERYTHROMYCIN [Suspect]
     Indication: CELLULITIS
     Dosage: 500 MG, QID
     Route: 048
     Dates: start: 201210
  3. LISINOPRIL [Concomitant]
     Dosage: 15 MG, QD
  4. METFORMIN [Concomitant]
     Dosage: 1 G, BID
  5. PROPANTHELINE [Concomitant]
     Dosage: 30 MG, TID
  6. PYRIDOSTIGMINE [Concomitant]
     Dosage: 30 MG, TID
  7. SPIRONOLACTONE [Concomitant]
     Dosage: 25 MG, QD
  8. AMLODIPINE [Concomitant]
     Dosage: 10 MG, QD
  9. CITALOPRAM [Concomitant]
     Dosage: 20 MG, QD
  10. ACIDO FOLICO [Concomitant]
     Dosage: 5 MG, QD (EXCEPT SUNDAYS)
  11. FUROSEMIDE [Concomitant]
     Dosage: 80 MG, QD (IN THE MORNING)
  12. WARFARIN [Concomitant]
     Indication: DEEP VEIN THROMBOSIS
  13. PREDNISOLONE [Concomitant]
     Dosage: 4 MG, QD (IN THE MORNING)
  14. ALENDRONIC ACID [Concomitant]
     Dosage: 70 MG, QW
  15. METHOTREXATE [Concomitant]
     Dosage: 20 MG, QW (ON SUNDAYS)
  16. NOVORAPID [Concomitant]
  17. LANTUS [Concomitant]
  18. EXENATIDE [Concomitant]
     Dosage: 10 UG, BID
  19. AMITRIPTYLINE HYDROCHLORIDE [Concomitant]
     Dosage: 75 MG, QD (AT NIGHT)
  20. ATORVASTATIN [Concomitant]

REACTIONS (6)
  - Malaise [Recovered/Resolved]
  - Local swelling [Recovered/Resolved with Sequelae]
  - Tenderness [Recovered/Resolved]
  - Pyrexia [Recovered/Resolved]
  - Erythema [Recovered/Resolved with Sequelae]
  - Treatment failure [Unknown]
